FAERS Safety Report 4309333-0 (Version None)
Quarter: 2004Q1

REPORT INFORMATION
  Report Type: 
  Country: None (occurrence: None)
  Receive Date: 20040302
  Receipt Date: 20040223
  Transmission Date: 20041129
  Serious: Yes (Hospitalization)
  Sender: FDA-Public Use
  Company Number: FR-GLAXOSMITHKLINE-B0324223A

PATIENT
  Age: 72 Year
  Sex: Female

DRUGS (1)
  1. CLAMOXYL [Suspect]
     Route: 048
     Dates: start: 19890614, end: 19890615

REACTIONS (8)
  - DYSPNOEA [None]
  - MUCOUS MEMBRANE DISORDER [None]
  - ONYCHOMADESIS [None]
  - PYREXIA [None]
  - RASH [None]
  - SKIN DESQUAMATION [None]
  - SKIN DISORDER [None]
  - TOXIC SKIN ERUPTION [None]
